FAERS Safety Report 16819991 (Version 1)
Quarter: 2019Q3

REPORT INFORMATION
  Report Type: Spontaneous
  Country: US (occurrence: US)
  Receive Date: 20190918
  Receipt Date: 20190918
  Transmission Date: 20191005
  Serious: No
  Sender: FDA-Public Use
  Company Number: US-JNJFOC-20190913301

PATIENT
  Sex: Male
  Weight: 102.15 kg

DRUGS (1)
  1. TYLENOL 8 HR ARTHRITIS PAIN [Suspect]
     Active Substance: ACETAMINOPHEN
     Indication: ARTHRITIS
     Dosage: 2 TABLETS DAILY
     Route: 048

REACTIONS (3)
  - Headache [Recovered/Resolved]
  - Product packaging difficult to open [Unknown]
  - Inappropriate schedule of product administration [Unknown]
